FAERS Safety Report 10475942 (Version 1)
Quarter: 2014Q3

REPORT INFORMATION
  Report Type: Spontaneous
  Country: US (occurrence: US)
  Receive Date: 20140925
  Receipt Date: 20140925
  Transmission Date: 20150326
  Serious: No
  Sender: FDA-Public Use
  Company Number: US-GLAXOSMITHKLINE-A1056185A

PATIENT
  Age: 90 Year
  Sex: Female

DRUGS (17)
  1. SEREVENT [Suspect]
     Active Substance: SALMETEROL XINAFOATE
     Indication: ASTHMA
     Dosage: 1PUFF TWICE PER DAY
     Route: 055
  2. VITAMIN B12 [Concomitant]
     Active Substance: CYANOCOBALAMIN
  3. CALCIUM + MAGNESIUM + ZINC [Concomitant]
     Active Substance: CALCIUM\MAGNESIUM\ZINC
  4. VITAMIN D [Concomitant]
     Active Substance: CHOLECALCIFEROL
  5. PLAVIX [Concomitant]
     Active Substance: CLOPIDOGREL BISULFATE
  6. LASIX [Concomitant]
     Active Substance: FUROSEMIDE
  7. COENZYME Q10 [Concomitant]
     Active Substance: UBIDECARENONE
  8. PULMICORT TURBUHALER [Concomitant]
     Active Substance: BUDESONIDE
  9. LIPITOR [Concomitant]
     Active Substance: ATORVASTATIN CALCIUM
  10. SINGULAIR [Concomitant]
     Active Substance: MONTELUKAST SODIUM
  11. MULTIVITAMIN [Concomitant]
     Active Substance: VITAMINS
  12. ALLOPURINOL. [Concomitant]
     Active Substance: ALLOPURINOL
  13. GLUCOSAMINE [Concomitant]
     Active Substance: GLUCOSAMINE
  14. UNSPECIFIED MEDICATION [Concomitant]
     Active Substance: UNSPECIFIED INGREDIENT
  15. FLAXSEED [Concomitant]
     Active Substance: FLAX SEED
  16. ASPIRIN. [Concomitant]
     Active Substance: ASPIRIN
  17. FISH OIL [Concomitant]
     Active Substance: FISH OIL

REACTIONS (2)
  - Dyspnoea [Recovered/Resolved]
  - Product quality issue [Unknown]

NARRATIVE: CASE EVENT DATE: 201309
